FAERS Safety Report 4600359-6 (Version None)
Quarter: 2005Q1

REPORT INFORMATION
  Report Type: 
  Country: None (occurrence: None)
  Receive Date: 20050303
  Receipt Date: 20050210
  Transmission Date: 20050727
  Serious: Yes (Hospitalization)
  Sender: FDA-Public Use
  Company Number: USA050187392

PATIENT
  Age: 73 Year
  Sex: Female
  Weight: 75 kg

DRUGS (1)
  1. FORTEO [Suspect]
     Indication: BONE DISORDER
     Dates: start: 20041201

REACTIONS (14)
  - ASTHENIA [None]
  - BLOOD CHLORIDE DECREASED [None]
  - DEHYDRATION [None]
  - DIFFICULTY IN WALKING [None]
  - ELECTROCARDIOGRAM ABNORMAL [None]
  - HAEMATOCRIT DECREASED [None]
  - HYPONATRAEMIA [None]
  - NASAL CONGESTION [None]
  - PHARMACEUTICAL PRODUCT COMPLAINT [None]
  - PNEUMONIA STREPTOCOCCAL [None]
  - PNEUMONITIS [None]
  - SEDATION [None]
  - SINUS TACHYCARDIA [None]
  - SUPRAVENTRICULAR EXTRASYSTOLES [None]
